FAERS Safety Report 24186429 (Version 1)
Quarter: 2024Q3

REPORT INFORMATION
  Report Type: Report from Study
  Country: HR (occurrence: HR)
  Receive Date: 20240808
  Receipt Date: 20240808
  Transmission Date: 20241017
  Serious: Yes (Other)
  Sender: ROCHE
  Company Number: HR-ROCHE-10000047135

PATIENT

DRUGS (1)
  1. OCRELIZUMAB [Suspect]
     Active Substance: OCRELIZUMAB
     Indication: Primary progressive multiple sclerosis
     Dosage: AT A 2-WEEK INTERVAL.
     Route: 042

REACTIONS (10)
  - Infusion related reaction [Unknown]
  - Urinary tract infection [Unknown]
  - COVID-19 [Unknown]
  - COVID-19 pneumonia [Unknown]
  - Febrile neutropenia [Unknown]
  - Acarodermatitis [Unknown]
  - Varicella zoster virus infection [Unknown]
  - Breast cancer [Unknown]
  - Adenocarcinoma of colon [Unknown]
  - Metastatic malignant melanoma [Unknown]
